FAERS Safety Report 11022313 (Version 1)
Quarter: 2015Q2

REPORT INFORMATION
  Report Type: Spontaneous
  Country: GB (occurrence: GB)
  Receive Date: 20150413
  Receipt Date: 20150413
  Transmission Date: 20150821
  Serious: Yes (Other)
  Sender: FDA-Public Use
  Company Number: GB-BANPHARM-20153785

PATIENT
  Age: 67 Year
  Sex: Male
  Weight: 106 kg

DRUGS (34)
  1. ATORVASTATIN [Concomitant]
     Active Substance: ATORVASTATIN
     Dosage: 1 DF, QD,
     Dates: start: 20140904
  2. NASEPTIN [Concomitant]
     Active Substance: CHLORHEXIDINE HYDROCHLORIDE\NEOMYCIN SULFATE
     Dates: start: 20150114, end: 20150211
  3. VENTOLIN [Concomitant]
     Active Substance: ALBUTEROL SULFATE
     Dosage: 2 DF, PRN,
     Dates: start: 20140904
  4. AMLODIPINE [Concomitant]
     Active Substance: AMLODIPINE BESYLATE
     Dosage: 1 DF, QD,
     Dates: start: 20140904
  5. BISACODYL. [Concomitant]
     Active Substance: BISACODYL
     Indication: CONSTIPATION
     Dosage: 1 DF,
     Dates: start: 20140904
  6. QUINNE [Concomitant]
     Dates: start: 20140904
  7. TIOTROPIUM [Concomitant]
     Active Substance: TIOTROPIUM
     Dosage: 1 DF, QD,
     Dates: start: 20140904
  8. ALLOPURINOL. [Concomitant]
     Active Substance: ALLOPURINOL
     Dosage: 1 DF, QD,
     Dates: start: 20140904
  9. CORSODYL [Concomitant]
     Active Substance: CHLORHEXIDINE GLUCONATE
     Dosage: 1 DF, BID,
     Dates: start: 20150319
  10. FERROUS FUMARATE [Concomitant]
     Active Substance: FERROUS FUMARATE
     Dosage: 1 DF, TID,
     Dates: start: 20140904
  11. LANSOPRAZOLE. [Concomitant]
     Active Substance: LANSOPRAZOLE
     Dosage: 1 DF, QD,
     Dates: start: 20140904
  12. NICORANDIL [Concomitant]
     Active Substance: NICORANDIL
     Dosage: 1 DF, BID,
     Dates: start: 20140904
  13. NYSTAN [Concomitant]
     Active Substance: NYSTATIN
     Dosage: 1 ML, QID,
     Dates: start: 20150312, end: 20150319
  14. PARACETAMOL [Concomitant]
     Active Substance: ACETAMINOPHEN
     Dosage: QID,
     Dates: start: 20150312, end: 20150322
  15. RECTOGESIC [Concomitant]
     Active Substance: NITROGLYCERIN
     Dates: start: 20150129, end: 20150226
  16. MOXONIDINE [Concomitant]
     Active Substance: MOXONIDINE
     Dosage: 1 DF, QD,
     Dates: start: 20140904
  17. DERMOL [Concomitant]
     Active Substance: BENZALKONIUM CHLORIDE\CHLORHEXIDINE HYDROCHLORIDE\ISOPROPYL MYRISTATE\PARAFFIN
     Dates: start: 20140904
  18. DIPROBASE [Concomitant]
     Active Substance: CHLOROCRESOL
     Dosage: 1 DF, TID,
     Dates: start: 20140904, end: 20150203
  19. CLOPIDOGREL [Concomitant]
     Active Substance: CLOPIDOGREL BISULFATE
     Dosage: 1 DF, QD,
     Dates: start: 20140904
  20. LACRI-LUBE [Concomitant]
     Dates: start: 20140904
  21. PERINDOPRIL ERBUMINE. [Concomitant]
     Active Substance: PERINDOPRIL ERBUMINE
     Dosage: 1 DF, QD,
     Dates: start: 20140904
  22. GLICLAZIDE [Concomitant]
     Active Substance: GLICLAZIDE
     Dosage: 1 DF, BID,
     Dates: start: 20140904
  23. REFRESH OPTIVE [Concomitant]
     Active Substance: CARBOXYMETHYLCELLULOSE SODIUM\GLYCERIN
     Dates: start: 20140904
  24. IBUPROFEN UNKNOWN PRODUCT [Suspect]
     Active Substance: IBUPROFEN
     Dates: start: 20150324
  25. AMITRIPTYLNE HYDROCHLORIDE [Concomitant]
     Dosage: 1 DF, QD,
     Dates: start: 20140904
  26. ASPIRIN. [Concomitant]
     Active Substance: ASPIRIN
     Dosage: 1 DF, QD,
     Dates: start: 20140904
  27. BISOPROLOL [Concomitant]
     Active Substance: BISOPROLOL
     Dosage: 1 DF, QD,
     Dates: start: 20140904
  28. CETIRIZINE [Concomitant]
     Active Substance: CETIRIZINE HYDROCHLORIDE
     Dates: start: 20140904
  29. FOSTAIR [Concomitant]
     Active Substance: BECLOMETHASONE\FORMOTEROL
     Dosage: 1 DF, BID,
     Dates: start: 20140904
  30. FUROSEMIDE. [Concomitant]
     Active Substance: FUROSEMIDE
     Dosage: 1 DF, BID,
     Dates: start: 20140904
  31. GLYCERYL TRINITRATE [Concomitant]
     Active Substance: NITROGLYCERIN
     Dates: start: 20140904
  32. HYLO-FORTE [Concomitant]
     Dates: start: 20140904
  33. METFORMIN [Concomitant]
     Active Substance: METFORMIN HYDROCHLORIDE
     Dosage: 2 DF, BID,
     Dates: start: 20140904
  34. OILATUM [Concomitant]
     Dosage: PRN,
     Dates: start: 20140904

REACTIONS (2)
  - Chronic kidney disease [Recovered/Resolved]
  - Malaise [Unknown]

NARRATIVE: CASE EVENT DATE: 20150324
